FAERS Safety Report 9493221 (Version 3)
Quarter: 2014Q3

REPORT INFORMATION
  Report Type: Report from Study
  Country: JP (occurrence: JP)
  Receive Date: 20130902
  Receipt Date: 20140916
  Transmission Date: 20150326
  Serious: Yes (Other)
  Sender: FDA-Public Use
  Company Number: PHHY2013JP094706

PATIENT
  Age: 38 Year
  Sex: Male

DRUGS (39)
  1. CLOZARIL [Suspect]
     Active Substance: CLOZAPINE
     Dosage: 100 MG, DAILY
     Route: 048
     Dates: start: 20130309, end: 20130313
  2. CLOZARIL [Suspect]
     Active Substance: CLOZAPINE
     Dosage: 200 MG, DAILY
     Route: 048
     Dates: start: 20130325, end: 20130331
  3. CLOZARIL [Suspect]
     Active Substance: CLOZAPINE
     Dosage: 475 MG, DAILY
     Route: 048
     Dates: start: 20130418, end: 20130425
  4. AKINETON [Suspect]
     Active Substance: BIPERIDEN HYDROCHLORIDE
     Dosage: 5 MG, DAILY
     Route: 048
     Dates: start: 20130325, end: 20130327
  5. CERCINE [Concomitant]
     Active Substance: DIAZEPAM
     Dosage: 12 MG, UNK
     Route: 048
  6. CERCINE [Concomitant]
     Active Substance: DIAZEPAM
     Dosage: 4 MG, UNK
     Route: 048
  7. MAGLAX [Concomitant]
     Active Substance: MAGNESIUM OXIDE
     Dosage: 1500 MG, UNK
     Route: 048
  8. CLOZARIL [Suspect]
     Active Substance: CLOZAPINE
     Dosage: 125 MG, DAILY
     Route: 048
     Dates: start: 20130314, end: 20130317
  9. AKINETON [Suspect]
     Active Substance: BIPERIDEN HYDROCHLORIDE
     Dosage: 6 MG, DAILY
     Route: 048
     Dates: start: 20130628
  10. CERCINE [Concomitant]
     Active Substance: DIAZEPAM
     Dosage: 2 MG, UNK
     Route: 048
     Dates: end: 20130529
  11. MAGLAX [Concomitant]
     Active Substance: MAGNESIUM OXIDE
     Indication: SCHIZOPHRENIA, UNDIFFERENTIATED TYPE
     Dosage: 1000 MG, UNK
     Route: 048
  12. MAGLAX [Concomitant]
     Active Substance: MAGNESIUM OXIDE
     Dosage: 1500 MG, UNK
     Route: 048
  13. RISPERDAL [Concomitant]
     Active Substance: RISPERIDONE
     Indication: SCHIZOPHRENIA, UNDIFFERENTIATED TYPE
     Dosage: 2 MG, UNK
     Route: 048
     Dates: end: 20130307
  14. CLOZARIL [Suspect]
     Active Substance: CLOZAPINE
     Dosage: 175 MG, DAILY
     Route: 048
     Dates: start: 20130321, end: 20130324
  15. CLOZARIL [Suspect]
     Active Substance: CLOZAPINE
     Dosage: 325 MG, DAILY
     Route: 048
     Dates: start: 20130405, end: 20130408
  16. RISPERIDONE. [Suspect]
     Active Substance: RISPERIDONE
  17. SERENACE [Suspect]
     Active Substance: HALOPERIDOL
     Dosage: 9 MG, DAILY
     Route: 048
     Dates: start: 20130307, end: 20130311
  18. CERCINE [Concomitant]
     Active Substance: DIAZEPAM
     Dosage: 10 MG, UNK
     Route: 048
  19. CLOZARIL [Suspect]
     Active Substance: CLOZAPINE
     Indication: SCHIZOPHRENIA, UNDIFFERENTIATED TYPE
     Dosage: 12.5 MG, DAILY
     Route: 048
     Dates: start: 20130228, end: 20130228
  20. CLOZARIL [Suspect]
     Active Substance: CLOZAPINE
     Dosage: 550 MG, DAILY
     Route: 048
     Dates: start: 20130426, end: 20130522
  21. AKINETON [Suspect]
     Active Substance: BIPERIDEN HYDROCHLORIDE
     Dosage: 6 MG, DAILY
     Route: 048
     Dates: start: 20130328, end: 20130613
  22. CLOZARIL [Suspect]
     Active Substance: CLOZAPINE
     Dosage: 25 MG, DAILY
     Route: 048
     Dates: start: 20130301, end: 20130303
  23. CERCINE [Concomitant]
     Active Substance: DIAZEPAM
     Indication: SCHIZOPHRENIA, UNDIFFERENTIATED TYPE
     Dosage: 15 MG, UNK
     Route: 048
  24. CLOZARIL [Suspect]
     Active Substance: CLOZAPINE
     Dosage: 600 MG, DAILY
     Route: 048
     Dates: start: 20130523
  25. SERENACE [Suspect]
     Active Substance: HALOPERIDOL
     Indication: SCHIZOPHRENIA, UNDIFFERENTIATED TYPE
     Dosage: 12 MG, DAILY
     Route: 048
     Dates: end: 20130306
  26. SERENACE [Suspect]
     Active Substance: HALOPERIDOL
     Dosage: 3 MG, DAILY
     Route: 048
     Dates: start: 20130312, end: 20130317
  27. AKINETON [Suspect]
     Active Substance: BIPERIDEN HYDROCHLORIDE
     Indication: SCHIZOPHRENIA, UNDIFFERENTIATED TYPE
     Dosage: 3 MG, DAILY
     Route: 048
     Dates: end: 20130320
  28. AKINETON [Suspect]
     Active Substance: BIPERIDEN HYDROCHLORIDE
     Dosage: 4 MG, DAILY
     Route: 048
     Dates: start: 20130321, end: 20130324
  29. AKINETON [Suspect]
     Active Substance: BIPERIDEN HYDROCHLORIDE
     Dosage: 5 MG, DAILY
     Route: 048
     Dates: start: 20130614, end: 20130627
  30. CERCINE [Concomitant]
     Active Substance: DIAZEPAM
     Dosage: 7 MG, UNK
     Route: 048
  31. BENZALIN [Concomitant]
     Active Substance: NITRAZEPAM
     Indication: SCHIZOPHRENIA, UNDIFFERENTIATED TYPE
     Dosage: 10 MG, UNK
     Route: 048
  32. BENZALIN [Concomitant]
     Active Substance: NITRAZEPAM
     Dosage: 5 MG, UNK
     Route: 048
     Dates: end: 20130306
  33. CLOZARIL [Suspect]
     Active Substance: CLOZAPINE
     Dosage: 50 MG, DAILY
     Route: 048
     Dates: start: 20130304, end: 20130306
  34. CLOZARIL [Suspect]
     Active Substance: CLOZAPINE
     Dosage: 150 MG, DAILY
     Route: 048
     Dates: start: 20130318, end: 20130320
  35. CLOZARIL [Suspect]
     Active Substance: CLOZAPINE
     Dosage: 275 MG, DAILY
     Route: 048
     Dates: start: 20130401, end: 20130404
  36. MARZULENE-S [Concomitant]
     Active Substance: SODIUM GUALENATE
     Indication: GASTRITIS
     Dosage: 1.5 G, UNK
     Route: 048
  37. CLOZARIL [Suspect]
     Active Substance: CLOZAPINE
     Dosage: 75 MG, DAILY
     Route: 048
     Dates: start: 20130307, end: 20130308
  38. CLOZARIL [Suspect]
     Active Substance: CLOZAPINE
     Dosage: 400 MG, DAILY
     Route: 048
     Dates: start: 20130409, end: 20130417
  39. MAGLAX [Concomitant]
     Active Substance: MAGNESIUM OXIDE
     Dosage: 1000 MG, UNK
     Route: 048

REACTIONS (8)
  - Suicidal ideation [Recovered/Resolved]
  - Heart rate increased [Unknown]
  - White blood cell count increased [Recovered/Resolved]
  - Electroencephalogram abnormal [Recovering/Resolving]
  - Neutrophil count increased [Recovered/Resolved]
  - Eosinophil count increased [Unknown]
  - Psychiatric symptom [Unknown]
  - Generalised tonic-clonic seizure [Recovered/Resolved]

NARRATIVE: CASE EVENT DATE: 20130319
